FAERS Safety Report 23150731 (Version 1)
Quarter: 2023Q4

REPORT INFORMATION
  Report Type: Spontaneous
  Country: US (occurrence: US)
  Receive Date: 20231106
  Receipt Date: 20231106
  Transmission Date: 20240110
  Serious: No
  Sender: FDA-Public Use
  Company Number: US-ALNYLAM PHARMACEUTICALS, INC.-ALN-2023-005787

PATIENT

DRUGS (2)
  1. ONPATTRO [Suspect]
     Active Substance: PATISIRAN SODIUM
     Indication: Product used for unknown indication
     Dosage: UNK
     Route: 042
     Dates: end: 20231016
  2. GABAPENTIN [Concomitant]
     Active Substance: GABAPENTIN
     Indication: Product used for unknown indication
     Dosage: 5 DOSES A DAY (ONE IN THE MORNING, ONE AT LUNCH AND 3 AT BEDTIME)
     Route: 065

REACTIONS (3)
  - Pain [Unknown]
  - Hypoaesthesia [Unknown]
  - Paraesthesia [Unknown]
